FAERS Safety Report 6338817-9 (Version None)
Quarter: 2009Q3

REPORT INFORMATION
  Report Type: 
  Country: None (occurrence: None)
  Receive Date: 20090903
  Receipt Date: 20090824
  Transmission Date: 20100115
  Serious: Yes (Hospitalization)
  Sender: FDA-Public Use
  Company Number: US-WYE-H10707309

PATIENT
  Sex: Male

DRUGS (2)
  1. EFFEXOR XR [Suspect]
     Route: 048
     Dates: start: 20090301, end: 20090801
  2. EFFEXOR XR [Suspect]
     Route: 048
     Dates: start: 20090801

REACTIONS (1)
  - SELF-INJURIOUS IDEATION [None]
